FAERS Safety Report 7292308-X (Version None)
Quarter: 2011Q1

REPORT INFORMATION
  Report Type: 
  Country: None (occurrence: None)
  Receive Date: 20110202
  Receipt Date: 20110125
  Transmission Date: 20110831
  Serious: Yes (Other)
  Sender: FDA-Public Use
  Company Number: 2011SP003577

PATIENT
  Age: 81 Year
  Sex: Male
  Weight: 58.5 kg

DRUGS (9)
  1. VELCADE [Concomitant]
  2. CLEXANE [Concomitant]
  3. DEXAMETHASONE (DEXAMETHASONE /00016001/) [Suspect]
     Indication: PRODUCT USED FOR UNKNOWN INDICATION
     Dosage: 20 MG; BID; PO
     Route: 048
     Dates: start: 20110107, end: 20110108
  4. SIMPLE SYRUP [Concomitant]
  5. ALENDRONIC ACID [Concomitant]
  6. AMOXICILLIN [Concomitant]
  7. BISOPROLOL FUMARATE [Concomitant]
  8. AMPICILLIN SODIUM/SULBACTAM SODIUM [Concomitant]
  9. ACETAMINOPHEN [Concomitant]

REACTIONS (6)
  - COUGH [None]
  - ALANINE AMINOTRANSFERASE INCREASED [None]
  - DUODENITIS [None]
  - UPPER GASTROINTESTINAL HAEMORRHAGE [None]
  - ULCER [None]
  - DYSPNOEA [None]
